FAERS Safety Report 6918618-0 (Version None)
Quarter: 2010Q3

REPORT INFORMATION
  Report Type: 
  Country: None (occurrence: None)
  Receive Date: 20100811
  Receipt Date: 20100730
  Transmission Date: 20110219
  Serious: Yes (Other)
  Sender: FDA-Public Use
  Company Number: JP-PFIZER INC-2010076111

PATIENT
  Age: 90 Year
  Sex: Male
  Weight: 45 kg

DRUGS (4)
  1. DETRUSITOL [Suspect]
     Indication: HYPERTONIC BLADDER
     Dosage: 2 MG, 1X/DAY
     Route: 048
     Dates: start: 20091125, end: 20100524
  2. LOXOPROFEN SODIUM [Concomitant]
     Indication: OSTEOARTHRITIS
     Dosage: UNK
     Dates: start: 20090801
  3. AMLODIPINE [Concomitant]
     Dosage: 5 MG, UNK
  4. OMEPRAZOLE [Concomitant]
     Dosage: 10 MG, UNK

REACTIONS (1)
  - ARTHRALGIA [None]
